FAERS Safety Report 5618623-0 (Version None)
Quarter: 2008Q1

REPORT INFORMATION
  Report Type: 
  Country: None (occurrence: None)
  Receive Date: 20080205
  Receipt Date: 20080205
  Transmission Date: 20080703
  Serious: No
  Sender: FDA-Public Use
  Company Number: None

PATIENT
  Age: 64 Year
  Sex: Male
  Weight: 95 kg

DRUGS (1)
  1. HEPARIN [Suspect]
     Indication: ANTICOAGULANT THERAPY
     Dosage: IV
     Route: 042
     Dates: start: 20080125

REACTIONS (1)
  - PHARMACEUTICAL PRODUCT COMPLAINT [None]
